FAERS Safety Report 22068223 (Version 1)
Quarter: 2023Q1

REPORT INFORMATION
  Report Type: Spontaneous
  Country: DE (occurrence: DE)
  Receive Date: 20230307
  Receipt Date: 20230307
  Transmission Date: 20230417
  Serious: Yes (Hospitalization)
  Sender: FDA-Public Use
  Company Number: DE-ABBVIE-4327855

PATIENT
  Age: 79 Year
  Sex: Male

DRUGS (10)
  1. CARBIDOPA\LEVODOPA [Suspect]
     Active Substance: CARBIDOPA\LEVODOPA
     Indication: Parkinson^s disease
     Dosage: MD: 8 ML/H; CRD 4.9 ML/H; ED 4.0 ML
     Route: 050
  2. CARBIDOPA\LEVODOPA [Suspect]
     Active Substance: CARBIDOPA\LEVODOPA
  3. Pramipexol retard [Concomitant]
     Indication: Product used for unknown indication
     Dosage: RETARD? 6 O^CLOCK
  4. Levodopa/Carbidopa/Entacapon [Concomitant]
     Indication: Product used for unknown indication
     Dosage: 2 O ^CLOCK
  5. Levodopa/Carbidopa/Entacapon [Concomitant]
     Indication: Product used for unknown indication
     Dosage: 200/50? 6-9-12-15-18-21 O^CLOCK
  6. Levodopa/Carbidopa/Entacapon [Concomitant]
     Indication: Product used for unknown indication
     Dosage: 200/50/200 MG?23 O^CLOCK
  7. CLOZAPINE [Suspect]
     Active Substance: CLOZAPINE
     Indication: Product used for unknown indication
     Route: 065
  8. ROTIGOTINE [Concomitant]
     Active Substance: ROTIGOTINE
     Indication: Product used for unknown indication
  9. OPICAPONE [Concomitant]
     Active Substance: OPICAPONE
     Indication: Product used for unknown indication
  10. SAFINAMIDE [Concomitant]
     Active Substance: SAFINAMIDE
     Indication: Product used for unknown indication

REACTIONS (9)
  - Hypokinesia [Recovering/Resolving]
  - Tremor [Recovering/Resolving]
  - Device dislocation [Unknown]
  - Pain [Unknown]
  - Delusional disorder, unspecified type [Unknown]
  - Akinesia [Unknown]
  - Hallucination, visual [Unknown]
  - Therapeutic product effect incomplete [Unknown]
  - Therapeutic product effect decreased [Unknown]
